FAERS Safety Report 9016142 (Version 1)
Quarter: 2013Q1

REPORT INFORMATION
  Report Type: Spontaneous
  Country: CN (occurrence: CN)
  Receive Date: 20130116
  Receipt Date: 20130116
  Transmission Date: 20140127
  Serious: Yes (Other)
  Sender: FDA-Public Use
  Company Number: CN-PFIZER INC-2013018599

PATIENT
  Age: 69 Year
  Sex: Male

DRUGS (2)
  1. ATORVASTATIN CALCIUM [Suspect]
     Dosage: UNK
     Dates: start: 2007, end: 2009
  2. ASPIRIN [Suspect]
     Dosage: UNK
     Dates: start: 2007, end: 2009

REACTIONS (1)
  - Hepatic cirrhosis [Recovered/Resolved]
